FAERS Safety Report 6554015-8 (Version None)
Quarter: 2010Q1

REPORT INFORMATION
  Report Type: 
  Country: None (occurrence: None)
  Receive Date: 20100125
  Receipt Date: 20100125
  Transmission Date: 20100710
  Serious: No
  Sender: FDA-Public Use
  Company Number: None

PATIENT
  Age: 58 Year
  Sex: Male
  Weight: 92.0802 kg

DRUGS (1)
  1. PROMETHAZINE HCL W/ CODEINE [Suspect]
     Indication: COUGH
     Dosage: 1 TEASPOON 4-6 HRS MOUTH
     Route: 048
     Dates: start: 20091123, end: 20091126

REACTIONS (3)
  - HYPOAESTHESIA [None]
  - PARAESTHESIA [None]
  - PRODUCT LABEL ISSUE [None]
